FAERS Safety Report 4456165-9 (Version None)
Quarter: 2004Q3

REPORT INFORMATION
  Report Type: 
  Country: None (occurrence: None)
  Receive Date: 20040920
  Receipt Date: 20040905
  Transmission Date: 20050211
  Serious: Yes (Hospitalization, Other)
  Sender: FDA-Public Use
  Company Number: 2004061055

PATIENT
  Age: 68 Year
  Sex: Female

DRUGS (10)
  1. SULPERAZONE (CEFOPERAZONE, SULBACTAM) [Suspect]
     Indication: STRESS ULCER
     Dosage: 9 GRAM (3 GRAM, 3 IN 1 D)
     Dates: start: 20040826, end: 20040904
  2. UNASYN [Suspect]
     Indication: ILL-DEFINED DISORDER
     Dosage: 2250 MG (750 MG, 3 IN 1 D), ORAL
     Route: 048
     Dates: start: 20040905
  3. PHENYTOIN SODIUM [Suspect]
     Indication: CONVULSION
     Dosage: 400 MG, ORAL
     Route: 048
     Dates: start: 20040905
  4. DEXAMETHASONE [Concomitant]
  5. ESOMEPRAZOLE (ESOMEPRAZOLE) [Concomitant]
  6. COMBIVENT [Concomitant]
  7. DOPAMINE HCL [Concomitant]
  8. VALIUM FOR INJECTION (BENZOIC ACID, BENZYL ALCOHOL, DIAZEPAM, ETHANOL, [Concomitant]
  9. DOBUTAMINE (DOBUTAMINE) [Concomitant]
  10. OMEPRAZOLE [Concomitant]

REACTIONS (6)
  - COMA [None]
  - GASTRITIS [None]
  - GRAND MAL CONVULSION [None]
  - HYPOTENSION [None]
  - MELAENA [None]
  - URINE OUTPUT DECREASED [None]
